FAERS Safety Report 16653191 (Version 1)
Quarter: 2019Q3

REPORT INFORMATION
  Report Type: Spontaneous
  Country: US (occurrence: US)
  Receive Date: 20190731
  Receipt Date: 20190731
  Transmission Date: 20191004
  Serious: No
  Sender: FDA-Public Use
  Company Number: US-BIOMARINAP-US-2019-122752

PATIENT
  Age: 13 Year
  Sex: Male

DRUGS (1)
  1. VIMIZIM [Suspect]
     Active Substance: ELOSULFASE ALFA
     Indication: MUCOPOLYSACCHARIDOSIS IV
     Dosage: 100 MILLIGRAM, QW
     Route: 042
     Dates: start: 20160322

REACTIONS (3)
  - Product dose omission [Unknown]
  - Hypoaesthesia [Unknown]
  - Vascular access complication [Unknown]

NARRATIVE: CASE EVENT DATE: 20190724
